FAERS Safety Report 11334710 (Version 1)
Quarter: 2015Q3

REPORT INFORMATION
  Report Type: Spontaneous
  Country: US (occurrence: US)
  Receive Date: 20150804
  Receipt Date: 20150804
  Transmission Date: 20151125
  Serious: No
  Sender: FDA-Public Use
  Company Number: US-009507513-1507USA014154

PATIENT
  Age: 18 Year
  Sex: Female
  Weight: 90.7 kg

DRUGS (1)
  1. NEXPLANON [Suspect]
     Active Substance: ETONOGESTREL
     Indication: MENSTRUAL CYCLE MANAGEMENT
     Dosage: 3 YEAR IMPLANT
     Route: 059
     Dates: start: 20150331

REACTIONS (2)
  - Device dislocation [Unknown]
  - Drug administration error [Unknown]

NARRATIVE: CASE EVENT DATE: 20150331
